FAERS Safety Report 4822909-7 (Version None)
Quarter: 2005Q4

REPORT INFORMATION
  Report Type: 
  Country: None (occurrence: None)
  Receive Date: 20051104
  Receipt Date: 20051021
  Transmission Date: 20060501
  Serious: Yes (Hospitalization, Other)
  Sender: FDA-Public Use
  Company Number: 2005-0008846

PATIENT
  Age: 40 Year
  Sex: Male

DRUGS (3)
  1. VIREAD [Suspect]
     Indication: ACQUIRED IMMUNODEFICIENCY SYNDROME
  2. KALETRA [Suspect]
     Indication: ACQUIRED IMMUNODEFICIENCY SYNDROME
  3. ABACAVIR (ABACAVIR) [Suspect]
     Indication: ACQUIRED IMMUNODEFICIENCY SYNDROME

REACTIONS (12)
  - CACHEXIA [None]
  - DIAPHRAGMATIC DISORDER [None]
  - HEART RATE INCREASED [None]
  - HICCUPS [None]
  - HISTOPLASMOSIS DISSEMINATED [None]
  - IMMUNE RECONSTITUTION SYNDROME [None]
  - LUNG NEOPLASM [None]
  - LYMPHADENOPATHY [None]
  - NERVE COMPRESSION [None]
  - SPLEEN PALPABLE [None]
  - SPLENOMEGALY [None]
  - WEIGHT DECREASED [None]
